FAERS Safety Report 4350671-3 (Version None)
Quarter: 2004Q2

REPORT INFORMATION
  Report Type: 
  Country: None (occurrence: None)
  Receive Date: 20040428
  Receipt Date: 20040422
  Transmission Date: 20050107
  Serious: Yes (Disabling, Other)
  Sender: FDA-Public Use
  Company Number: GBWYE632410MAR04

PATIENT
  Age: 53 Year
  Sex: Female

DRUGS (1)
  1. MINOCIN [Suspect]
     Indication: URINARY TRACT INFECTION
     Dosage: 100 MG 2X PER 1 DAY
     Route: 048
     Dates: start: 20040304, end: 20040307

REACTIONS (4)
  - ACTIVITIES OF DAILY LIVING IMPAIRED [None]
  - DIZZINESS [None]
  - HAEMATURIA [None]
  - VERTIGO [None]
